FAERS Safety Report 12639777 (Version 1)
Quarter: 2016Q3

REPORT INFORMATION
  Report Type: Spontaneous
  Country: US (occurrence: US)
  Receive Date: 20160810
  Receipt Date: 20160810
  Transmission Date: 20161109
  Serious: No
  Sender: FDA-Public Use
  Company Number: US-ASTRAZENECA-2016SE83301

PATIENT
  Sex: Female

DRUGS (8)
  1. CRESTOR [Suspect]
     Active Substance: ROSUVASTATIN CALCIUM
     Indication: BLOOD CHOLESTEROL ABNORMAL
     Dosage: GENERIC
     Route: 065
  2. LIPITOR [Concomitant]
     Active Substance: ATORVASTATIN CALCIUM
  3. CRESTOR [Suspect]
     Active Substance: ROSUVASTATIN CALCIUM
     Indication: BLOOD CHOLESTEROL ABNORMAL
     Route: 048
     Dates: start: 1997
  4. METOPROLOL. [Concomitant]
     Active Substance: METOPROLOL
  5. ZOCOR [Concomitant]
     Active Substance: SIMVASTATIN
  6. LOSARTAN. [Concomitant]
     Active Substance: LOSARTAN
     Indication: BLOOD PRESSURE MEASUREMENT
  7. VITAMIN D3 [Concomitant]
     Active Substance: CHOLECALCIFEROL
  8. ALTACE [Concomitant]
     Active Substance: RAMIPRIL

REACTIONS (12)
  - Malaise [Unknown]
  - Hiatus hernia [Unknown]
  - Peripheral vascular disorder [Unknown]
  - Haemorrhoids [Unknown]
  - Cardiomegaly [Unknown]
  - Constipation [Unknown]
  - Colitis [Unknown]
  - Weight increased [Unknown]
  - Abdominal pain upper [Unknown]
  - Muscle spasms [Unknown]
  - Haemorrhage [Unknown]
  - Diarrhoea [Unknown]
